FAERS Safety Report 24226468 (Version 1)
Quarter: 2024Q3

REPORT INFORMATION
  Report Type: Spontaneous
  Country: PT (occurrence: None)
  Receive Date: 20240820
  Receipt Date: 20240820
  Transmission Date: 20241017
  Serious: Yes (Life-Threatening, Other)
  Sender: NORMON
  Company Number: None

PATIENT
  Age: 69 Year
  Sex: Female

DRUGS (11)
  1. Captopril 25 mg Comp OR SOS, [Concomitant]
     Indication: Product used for unknown indication
  2. Paracetamol 1 g/100 ml sol inj 100ml IV 08/8H [Concomitant]
     Indication: Product used for unknown indication
     Route: 065
  3. PANTOPRAZOLE SODIUM [Concomitant]
     Active Substance: PANTOPRAZOLE SODIUM
     Indication: Product used for unknown indication
  4. Metoclopramida 10mg/2ml Sol inj IM/IV [Concomitant]
     Indication: Product used for unknown indication
     Route: 065
  5. VANCOMYCIN HYDROCHLORIDE [Suspect]
     Active Substance: VANCOMYCIN HYDROCHLORIDE
     Indication: Intervertebral discitis
     Dosage: 1000 MG 12/12H, SEGUIDO DE 1000 MG 08/8H
     Dates: start: 20230406, end: 20230411
  6. CEFTRIAXONE SODIUM [Suspect]
     Active Substance: CEFTRIAXONE SODIUM
     Indication: Intervertebral discitis
     Dosage: 2000 MG 12/12H
     Dates: start: 20230406, end: 20230504
  7. Cetorolac 30mg/1ml sol inj amp IM/IV  SOS [Concomitant]
     Indication: Product used for unknown indication
     Route: 065
  8. PREGABALIN [Concomitant]
     Active Substance: PREGABALIN
     Indication: Product used for unknown indication
  9. Metamizol Mg 2 g/5 ml sol inj amp IM/IV SOS [Concomitant]
     Indication: Product used for unknown indication
     Route: 065
  10. Celecoxib 100mg 2 XS DIA [Concomitant]
     Indication: Product used for unknown indication
  11. DIAZEPAM [Concomitant]
     Active Substance: DIAZEPAM
     Indication: Product used for unknown indication

REACTIONS (8)
  - Rash maculo-papular [Recovered/Resolved]
  - Drug reaction with eosinophilia and systemic symptoms [Recovered/Resolved]
  - Face oedema [Recovered/Resolved]
  - Pyrexia [Recovered/Resolved]
  - Eosinophilia [Recovered/Resolved]
  - Purpura [Recovered/Resolved]
  - Rash [Recovered/Resolved]
  - Transaminases increased [Recovered/Resolved]

NARRATIVE: CASE EVENT DATE: 20230419
